FAERS Safety Report 9264493 (Version 1)
Quarter: 2013Q2

REPORT INFORMATION
  Report Type: Spontaneous
  Country: FR (occurrence: FR)
  Receive Date: 20130501
  Receipt Date: 20130501
  Transmission Date: 20140414
  Serious: Yes (Hospitalization)
  Sender: FDA-Public Use
  Company Number: PHHY2013FR041605

PATIENT
  Age: 58 Year
  Sex: Male

DRUGS (2)
  1. METFORMIN [Suspect]
     Dosage: UNK
  2. PSYCHOTHERAPY [Concomitant]
     Dosage: UNK UKN, UNK

REACTIONS (8)
  - Prothrombin level abnormal [Recovered/Resolved]
  - Coagulation factor decreased [Recovered/Resolved]
  - Renal impairment [Recovered/Resolved]
  - Metabolic acidosis [Recovered/Resolved]
  - Loss of consciousness [Recovered/Resolved]
  - Blood lactic acid increased [Recovered/Resolved]
  - Liver function test abnormal [Recovered/Resolved]
  - Intentional overdose [Recovered/Resolved]
